FAERS Safety Report 8434122 (Version 6)
Quarter: 2012Q4

REPORT INFORMATION
  Report Type: Report from Study
  Country: JP (occurrence: JP)
  Receive Date: 20120229
  Receipt Date: 20121217
  Transmission Date: 20130627
  Serious: Yes (Hospitalization, Other)
  Sender: FDA-Public Use
  Company Number: JP-VERTEX PHARMACEUTICALS INC.-AE-2012-002736

PATIENT
  Age: 65 Year
  Sex: Female

DRUGS (13)
  1. VX-950 (TELAPREVIR) [Suspect]
     Indication: CHRONIC HEPATITIS C
     Dosage: 2250 mg, qd
     Route: 048
     Dates: start: 20120124, end: 20120127
  2. VX-950 (TELAPREVIR) [Suspect]
     Dosage: 1500 mg, qd
     Route: 048
     Dates: start: 20120128, end: 20120213
  3. VX-950 (TELAPREVIR) [Suspect]
     Dosage: 750 mg, qd
     Route: 048
     Dates: start: 20120214, end: 20120216
  4. VX-950 (TELAPREVIR) [Suspect]
     Dosage: 1000 mg, qd
     Route: 048
     Dates: start: 20120217, end: 20120416
  5. REBETOL [Suspect]
     Indication: CHRONIC HEPATITIS C
     Dosage: 600 mg, qd
     Route: 048
     Dates: start: 20120124, end: 20120130
  6. REBETOL [Suspect]
     Dosage: 400 mg, qd
     Route: 048
     Dates: start: 20120131, end: 20120221
  7. REBETOL [Suspect]
     Dosage: 200 mg, qd
     Route: 048
     Dates: start: 20120222, end: 20120416
  8. REBETOL [Suspect]
     Dosage: 300 mg, qd
     Route: 048
     Dates: start: 20120417
  9. REBETOL [Suspect]
     Dosage: 400 mg, qd
     Route: 048
     Dates: start: 20120501
  10. REBETOL [Suspect]
     Dosage: 500 mg, qd
     Route: 048
     Dates: start: 20120515, end: 20120528
  11. REBETOL [Suspect]
     Dosage: 600 mg, qd
     Route: 048
     Dates: start: 20120529
  12. PEGINTRON                          /01543001/ [Suspect]
     Indication: CHRONIC HEPATITIS C
     Dosage: 1.5 ?g/kg, qw
     Route: 058
     Dates: start: 20120124, end: 20120710
  13. ALLOPURINOL [Concomitant]
     Dosage: 100 mg, qd
     Route: 048
     Dates: start: 20120223

REACTIONS (5)
  - White blood cell count decreased [Recovered/Resolved]
  - Decreased appetite [Recovered/Resolved]
  - Malaise [Not Recovered/Not Resolved]
  - Anaemia [Not Recovered/Not Resolved]
  - Haemoglobin decreased [Not Recovered/Not Resolved]
